FAERS Safety Report 25503612 (Version 4)
Quarter: 2025Q4

REPORT INFORMATION
  Report Type: Report from Study
  Country: JP (occurrence: JP)
  Receive Date: 20250702
  Receipt Date: 20251222
  Transmission Date: 20260117
  Serious: Yes (Hospitalization)
  Sender: BIOGEN
  Company Number: JP-BIOGEN-2025BI01315507

PATIENT
  Age: 54 Year
  Sex: Male
  Weight: 75.5 kg

DRUGS (5)
  1. QALSODY [Suspect]
     Active Substance: TOFERSEN
     Indication: Amyotrophic lateral sclerosis
  2. VIBEGRON [Suspect]
     Active Substance: VIBEGRON
  3. RILUZOLE [Concomitant]
     Active Substance: RILUZOLE
     Indication: Amyotrophic lateral sclerosis
  4. EDARAVONE [Concomitant]
     Active Substance: EDARAVONE
     Indication: Amyotrophic lateral sclerosis
  5. METHYLCOBALAMIN [Concomitant]
     Active Substance: METHYLCOBALAMIN
     Indication: Amyotrophic lateral sclerosis
     Dosage: HIGH DOSE

REACTIONS (3)
  - Myelitis [Not Recovered/Not Resolved]
  - Immobilisation syndrome [Unknown]
  - Neurogenic bladder [Unknown]

NARRATIVE: CASE EVENT DATE: 20250620
